FAERS Safety Report 7505925-6 (Version None)
Quarter: 2011Q2

REPORT INFORMATION
  Report Type: 
  Country: None (occurrence: None)
  Receive Date: 20110526
  Receipt Date: 20110518
  Transmission Date: 20111010
  Serious: Yes (Other)
  Sender: FDA-Public Use
  Company Number: ES-ROCHE-748424

PATIENT
  Sex: Female

DRUGS (10)
  1. IRBESARTAN [Concomitant]
  2. TOCILIZUMAB [Suspect]
     Indication: RHEUMATOID ARTHRITIS
     Dosage: LAST DOSE PRIOR TO SAE WAS ON 16 NOV 2010
     Route: 042
  3. TOCILIZUMAB [Suspect]
     Route: 042
     Dates: start: 20060411, end: 20100901
  4. ERYTROMYCIN [Concomitant]
  5. METHOTREXATE [Concomitant]
  6. CALCIUM CARBONATE [Concomitant]
  7. DICLOFENAC SODIUM [Concomitant]
  8. FOLIC ACID [Concomitant]
  9. METILPREDNISOLONE [Concomitant]
  10. FELODIPINE [Concomitant]

REACTIONS (1)
  - ARRHYTHMIA [None]
